FAERS Safety Report 8052884-6 (Version None)
Quarter: 2012Q1

REPORT INFORMATION
  Report Type: 
  Country: None (occurrence: None)
  Receive Date: 20120118
  Receipt Date: 20120112
  Transmission Date: 20120608
  Serious: Yes (Hospitalization)
  Sender: FDA-Public Use
  Company Number: US-JNJFOC-20110804654

PATIENT
  Sex: Female

DRUGS (2)
  1. MOTRIN IB [Suspect]
     Indication: PREMENSTRUAL SYNDROME
     Dates: start: 20090801
  2. MOTRIN IB [Suspect]

REACTIONS (16)
  - URINARY TRACT INFECTION [None]
  - NAUSEA [None]
  - THROMBOCYTOPENIA [None]
  - DIARRHOEA [None]
  - RASH [None]
  - HYPONATRAEMIA [None]
  - VOMITING [None]
  - ASTHENIA [None]
  - VASCULITIS [None]
  - HYPERSENSITIVITY [None]
  - JAUNDICE [None]
  - LIVER FUNCTION TEST ABNORMAL [None]
  - PRODUCT QUALITY ISSUE [None]
  - RENAL FAILURE ACUTE [None]
  - DIZZINESS [None]
  - ALOPECIA [None]
